FAERS Safety Report 25313850 (Version 1)
Quarter: 2025Q2

REPORT INFORMATION
  Report Type: Spontaneous
  Country: US (occurrence: None)
  Receive Date: 20250514
  Receipt Date: 20250514
  Transmission Date: 20250717
  Serious: Yes (Life-Threatening, Hospitalization, Disabling)
  Sender: FDA-CTU
  Company Number: None

PATIENT
  Age: 62 Year
  Sex: Male
  Weight: 78 kg

DRUGS (1)
  1. ZOMETA [Suspect]
     Active Substance: ZOLEDRONIC ACID
     Indication: Plasma cell myeloma
     Dates: start: 20200501, end: 20241016

REACTIONS (5)
  - Oral herpes [None]
  - Bacterial infection [None]
  - Bone abscess [None]
  - Cellulitis [None]
  - Osteonecrosis of jaw [None]

NARRATIVE: CASE EVENT DATE: 20250102
